FAERS Safety Report 7636292-5 (Version None)
Quarter: 2011Q3

REPORT INFORMATION
  Report Type: 
  Country: None (occurrence: None)
  Receive Date: 20110726
  Receipt Date: 20110701
  Transmission Date: 20111222
  Serious: Yes (Death, Hospitalization)
  Sender: FDA-Public Use
  Company Number: US-GLAXOSMITHKLINE-A0780411A

PATIENT
  Age: 57 Year
  Sex: Male
  Weight: 75 kg

DRUGS (14)
  1. AVANDIA [Suspect]
     Indication: DIABETES MELLITUS
     Dosage: 4MG TWICE PER DAY
     Route: 048
     Dates: start: 20030101, end: 20060420
  2. LISINOPRIL [Concomitant]
  3. COREG [Concomitant]
  4. GLYBURIDE [Concomitant]
  5. AVANDAMET [Suspect]
     Indication: DIABETES MELLITUS
     Route: 048
     Dates: end: 20060420
  6. ZOLOFT [Concomitant]
  7. SYNTHROID [Concomitant]
  8. ZETIA [Concomitant]
  9. DIGOXIN [Concomitant]
  10. DOXYCYCLINE [Concomitant]
  11. SPIRONOLACTONE [Concomitant]
  12. METFORMIN HCL [Concomitant]
  13. FUROSEMIDE [Concomitant]
  14. ZOCOR [Concomitant]

REACTIONS (4)
  - ISCHAEMIC CARDIOMYOPATHY [None]
  - SUDDEN CARDIAC DEATH [None]
  - CARDIAC FAILURE CONGESTIVE [None]
  - CORONARY ARTERY DISEASE [None]
